FAERS Safety Report 23804511 (Version 1)
Quarter: 2024Q2

REPORT INFORMATION
  Report Type: Spontaneous
  Country: US (occurrence: None)
  Receive Date: 20240501
  Receipt Date: 20240501
  Transmission Date: 20240716
  Serious: No
  Sender: FDA-Public Use
  Company Number: None

PATIENT
  Age: 73 Year
  Sex: Male
  Weight: 158 kg

DRUGS (1)
  1. EMPAGLIFLOZIN [Suspect]
     Active Substance: EMPAGLIFLOZIN
     Dosage: FREQUENCY : DAILY;?
     Route: 048
     Dates: start: 20191105, end: 20231117

REACTIONS (3)
  - Diabetic ketoacidosis [None]
  - Urinary tract infection [None]
  - Hyperglycaemia [None]

NARRATIVE: CASE EVENT DATE: 20231113
